FAERS Safety Report 11264657 (Version 4)
Quarter: 2015Q4

REPORT INFORMATION
  Report Type: Spontaneous
  Country: US (occurrence: US)
  Receive Date: 20150713
  Receipt Date: 20151110
  Transmission Date: 20160304
  Serious: No
  Sender: FDA-Public Use
  Company Number: US-PFIZER INC-2015227417

PATIENT
  Age: 60 Year
  Sex: Female
  Weight: 148 kg

DRUGS (3)
  1. FUROSEMIDE. [Concomitant]
     Active Substance: FUROSEMIDE
     Indication: OEDEMA
  2. LYRICA [Suspect]
     Active Substance: PREGABALIN
     Indication: OPTIC NEUROPATHY
     Dosage: 50 MG, 3X/DAY
     Route: 048
  3. FUROSEMIDE. [Concomitant]
     Active Substance: FUROSEMIDE
     Indication: FLUID RETENTION
     Dosage: 40 MG, 1X/DAY

REACTIONS (3)
  - Product colour issue [Recovering/Resolving]
  - Product tampering [Recovering/Resolving]
  - Salivary hypersecretion [Recovering/Resolving]

NARRATIVE: CASE EVENT DATE: 20150706
